FAERS Safety Report 8255192-3 (Version None)
Quarter: 2012Q2

REPORT INFORMATION
  Report Type: 
  Country: None (occurrence: None)
  Receive Date: 20120403
  Receipt Date: 20120329
  Transmission Date: 20120825
  Serious: Yes (Other)
  Sender: FDA-Public Use
  Company Number: JP-BAYER-2012-027744

PATIENT
  Sex: Female
  Weight: 3 kg

DRUGS (2)
  1. ANTIHEMOPHILIC FACTOR (HUMAN) [Suspect]
     Route: 064
  2. ANTIHEMOPHILIC FACTOR (HUMAN) [Suspect]
     Indication: VON WILLEBRAND'S DISEASE
     Route: 064

REACTIONS (1)
  - VON WILLEBRAND'S DISEASE [None]
